FAERS Safety Report 14456842 (Version 3)
Quarter: 2018Q1

REPORT INFORMATION
  Report Type: Spontaneous
  Country: US (occurrence: US)
  Receive Date: 20180130
  Receipt Date: 20180221
  Transmission Date: 20180509
  Serious: Yes (Other)
  Sender: FDA-Public Use
  Company Number: US-TAKEDA-2017TUS026466

PATIENT
  Sex: Female

DRUGS (2)
  1. BRIGATINIB [Suspect]
     Active Substance: BRIGATINIB
     Dosage: 90 MG, QD
     Route: 048
     Dates: start: 201508
  2. BRIGATINIB [Suspect]
     Active Substance: BRIGATINIB
     Indication: LUNG NEOPLASM MALIGNANT
     Dosage: 45 MG, QD
     Route: 048

REACTIONS (9)
  - Nausea [Recovered/Resolved]
  - Neuropathy peripheral [Unknown]
  - Pruritus [Unknown]
  - White blood cell count decreased [Unknown]
  - Brain neoplasm [Unknown]
  - Amnesia [Unknown]
  - Nasopharyngitis [Unknown]
  - Fall [Unknown]
  - Muscle spasms [Unknown]
